FAERS Safety Report 4445556-8 (Version None)
Quarter: 2004Q3

REPORT INFORMATION
  Report Type: 
  Country: None (occurrence: None)
  Receive Date: 20040908
  Receipt Date: 20040908
  Transmission Date: 20050211
  Serious: Yes (Other)
  Sender: FDA-Public Use
  Company Number: None

PATIENT
  Sex: Female
  Weight: 86 kg

DRUGS (15)
  1. NATRECOR [Suspect]
     Indication: CARDIAC FAILURE CONGESTIVE
     Dosage: 0.02MCG/KG/MIN
     Dates: start: 20040824
  2. PLACEBO [Suspect]
  3. ALDACTONE [Concomitant]
  4. LOPRESSOR [Concomitant]
  5. NORVASC [Concomitant]
  6. HYDRALAZINE HCL [Concomitant]
  7. LOTENSIN [Concomitant]
  8. DIGOXIN [Concomitant]
  9. COLACE [Concomitant]
  10. PROPYLTHIOURACIL [Concomitant]
  11. GLUCOPHAGE [Concomitant]
  12. COUMADIN [Concomitant]
  13. HYDROCHLOROTHIAZIDE [Concomitant]
  14. FESO4 [Concomitant]
  15. COMBIVENT [Concomitant]

REACTIONS (1)
  - MEDICATION ERROR [None]
